FAERS Safety Report 9745541 (Version 2)
Quarter: 2013Q4

REPORT INFORMATION
  Report Type: Report from Study
  Country: US (occurrence: US)
  Receive Date: 20131211
  Receipt Date: 20131211
  Transmission Date: 20140711
  Serious: Yes (Hospitalization, Other)
  Sender: FDA-Public Use
  Company Number: US-JNJFOC-20131107733

PATIENT
  Age: 48 Year
  Sex: Female
  Weight: 128.37 kg

DRUGS (5)
  1. REMICADE [Suspect]
     Indication: RHEUMATOID ARTHRITIS
     Route: 042
     Dates: start: 20130801
  2. REMICADE [Suspect]
     Indication: RHEUMATOID ARTHRITIS
     Dosage: START DATE: 12 YEARS AGO
     Route: 042
     Dates: start: 2003
  3. BENADRYL [Suspect]
     Route: 065
  4. BENADRYL [Suspect]
     Indication: MASS
     Route: 065
  5. METHOTREXATE [Concomitant]
     Indication: RHEUMATOID ARTHRITIS
     Dosage: 2.5MG
     Route: 048
     Dates: start: 2003

REACTIONS (7)
  - Infected cyst [Not Recovered/Not Resolved]
  - Cardiac failure congestive [Unknown]
  - Vein disorder [Unknown]
  - Panic attack [Unknown]
  - Weight decreased [Unknown]
  - Mass [Unknown]
  - Infection [Unknown]
